FAERS Safety Report 8004143-5 (Version None)
Quarter: 2011Q4

REPORT INFORMATION
  Report Type: 
  Country: None (occurrence: None)
  Receive Date: 20111223
  Receipt Date: 20111215
  Transmission Date: 20120403
  Serious: Yes (Other)
  Sender: FDA-Public Use
  Company Number: AR-AMGEN-ARGSP2011057521

PATIENT
  Age: 60 Year
  Sex: Male

DRUGS (5)
  1. ATENOLOL [Concomitant]
     Dosage: 100 MG, 1X/DAY
     Route: 048
  2. CLONAZEPAM [Concomitant]
     Dosage: UNK
  3. ENBREL [Suspect]
     Indication: RHEUMATOID ARTHRITIS
     Dosage: 50 MG, WEEKLY
     Route: 058
     Dates: start: 20110627, end: 20111012
  4. CHLOROTHIAZIDE [Concomitant]
     Dosage: UNK
  5. ENALAPRIL MALEATE [Concomitant]
     Dosage: 5 MG, 1X/DAY
     Route: 048

REACTIONS (1)
  - BLOOD PRESSURE INCREASED [None]
